FAERS Safety Report 5568621-0 (Version None)
Quarter: 2007Q4

REPORT INFORMATION
  Report Type: 
  Country: None (occurrence: None)
  Receive Date: 20071220
  Receipt Date: 20071213
  Transmission Date: 20080405
  Serious: Yes (Other)
  Sender: FDA-Public Use
  Company Number: PHBS2007JP18902

PATIENT
  Age: 66 Year
  Sex: Female
  Weight: 39 kg

DRUGS (8)
  1. AREDIA [Suspect]
     Indication: METASTASES TO BONE
     Dosage: 90 MG, UNK
     Route: 042
     Dates: start: 20041112, end: 20060417
  2. FEMARA [Concomitant]
     Dosage: UNK, UNK
     Route: 048
  3. DUROTEP JANSSEN [Concomitant]
     Dosage: 10 MG, UNK
     Route: 061
  4. WARFARIN SODIUM [Concomitant]
     Dosage: 2 MG, UNK
     Route: 048
  5. LOXONIN [Concomitant]
     Route: 048
  6. ZOMETA [Suspect]
     Indication: METASTASES TO BONE
     Dosage: 4 MG, UNK
     Route: 042
     Dates: start: 20060515
  7. AMOXICILLIN TRIHYDRATE [Concomitant]
     Indication: ORAL INFECTION
     Dosage: 750 MG/DAY
     Route: 048
     Dates: start: 20071029, end: 20071107
  8. MEIACT [Concomitant]
     Dosage: 300 MG/DAY
     Route: 048
     Dates: start: 20071019

REACTIONS (3)
  - DENTAL CARE [None]
  - OSTEONECROSIS [None]
  - TOOTH EXTRACTION [None]
